FAERS Safety Report 9464254 (Version 1)
Quarter: 2013Q3

REPORT INFORMATION
  Report Type: Report from Study
  Country: CA (occurrence: CA)
  Receive Date: 20130819
  Receipt Date: 20130819
  Transmission Date: 20140515
  Serious: Yes (Death, Hospitalization)
  Sender: FDA-Public Use
  Company Number: CA-JNJFOC-20130807016

PATIENT
  Age: 73 Year
  Sex: Female
  Weight: 29 kg

DRUGS (1)
  1. REMICADE [Suspect]
     Indication: PRODUCT USED FOR UNKNOWN INDICATION
     Dosage: DRUG FREQUENCY: EVERY 6 (UNITS UNSPECIFIED)
     Route: 042
     Dates: start: 20100629, end: 20130729

REACTIONS (1)
  - Cerebrovascular accident [Fatal]
